FAERS Safety Report 10369101 (Version 1)
Quarter: 2014Q3

REPORT INFORMATION
  Report Type: Spontaneous
  Country: IT (occurrence: IT)
  Receive Date: 20140807
  Receipt Date: 20140807
  Transmission Date: 20150326
  Serious: Yes (Hospitalization, Other)
  Sender: FDA-Public Use
  Company Number: PHHY2014IT095802

PATIENT
  Age: 58 Year
  Sex: Female

DRUGS (6)
  1. ALPRAZOLAM. [Suspect]
     Active Substance: ALPRAZOLAM
     Indication: SOMATISATION DISORDER
     Dosage: 1.5 MG, BID
  2. PREGABALIN. [Suspect]
     Active Substance: PREGABALIN
     Indication: SOMATISATION DISORDER
  3. ALPRAZOLAM. [Suspect]
     Active Substance: ALPRAZOLAM
     Indication: ANXIETY
     Dosage: 0.5 MG, BID
  4. PREGABALIN. [Suspect]
     Active Substance: PREGABALIN
     Indication: ANXIETY
     Dosage: 225 MG, PER DAY
  5. OLANZAPINE. [Suspect]
     Active Substance: OLANZAPINE
     Indication: ANXIETY
     Dosage: 5 MG, PER DAY
  6. OLANZAPINE. [Suspect]
     Active Substance: OLANZAPINE
     Indication: SOMATISATION DISORDER

REACTIONS (9)
  - Dizziness [Unknown]
  - Somatisation disorder [Unknown]
  - Anxiety [Unknown]
  - Condition aggravated [Unknown]
  - Tremor [Unknown]
  - Pathological gambling [Unknown]
  - Sleep disorder [Unknown]
  - Tension [Unknown]
  - Disease recurrence [Unknown]
